FAERS Safety Report 13204838 (Version 1)
Quarter: 2017Q1

REPORT INFORMATION
  Report Type: Spontaneous
  Country: US (occurrence: US)
  Receive Date: 20170208
  Receipt Date: 20170208
  Transmission Date: 20170428
  Serious: Yes (Other)
  Sender: FDA-Public Use
  Company Number: None

PATIENT
  Age: 67 Year
  Sex: Female
  Weight: 73.09 kg

DRUGS (13)
  1. ECHINACHEA [Concomitant]
  2. SUMATRIPTAN SUCCINATE. [Suspect]
     Active Substance: SUMATRIPTAN SUCCINATE
  3. SUMATRIPTAN SUCCINATE. [Suspect]
     Active Substance: SUMATRIPTAN SUCCINATE
     Indication: MIGRAINE
     Dosage: 2 SHOTS, 1 SHOTS, WHEN MIGRAINE OCCURRED, I HAD PILLS + INJECTIONS
     Dates: start: 199710, end: 20170121
  4. LEOTHYRONINE  - THYROID [Concomitant]
  5. VITAMIN B12 [Concomitant]
     Active Substance: CYANOCOBALAMIN
  6. THYROID ENERGY [Concomitant]
  7. ADRENAL COMPLEX [Concomitant]
  8. COLD SNAP [Concomitant]
  9. BENAZEPRIL AND HYDROCHLOROTHIAZIDE [Concomitant]
     Active Substance: BENAZEPRIL HYDROCHLORIDE\HYDROCHLOROTHIAZIDE
  10. MULTIPLE VITAMINS [Concomitant]
     Active Substance: VITAMINS
  11. LEVOTHYROXINE. [Concomitant]
     Active Substance: LEVOTHYROXINE
  12. CRANBERRY. [Concomitant]
     Active Substance: CRANBERRY
  13. FISH OIL [Concomitant]
     Active Substance: FISH OIL

REACTIONS (8)
  - Erythema [None]
  - Hyperhidrosis [None]
  - Musculoskeletal disorder [None]
  - Nausea [None]
  - Chest pain [None]
  - Dyspnoea [None]
  - Dry mouth [None]
  - Feeling abnormal [None]

NARRATIVE: CASE EVENT DATE: 20170112
